FAERS Safety Report 23648085 (Version 5)
Quarter: 2025Q2

REPORT INFORMATION
  Report Type: Spontaneous
  Country: US (occurrence: US)
  Receive Date: 20240319
  Receipt Date: 20250501
  Transmission Date: 20250717
  Serious: Yes (Hospitalization, Disabling, Other)
  Sender: MYLAN
  Company Number: US-MYLANLABS-2024M1022540

PATIENT

DRUGS (52)
  1. EPIPEN [Suspect]
     Active Substance: EPINEPHRINE
     Indication: Product used for unknown indication
  2. EPIPEN [Suspect]
     Active Substance: EPINEPHRINE
     Route: 065
  3. EPIPEN [Suspect]
     Active Substance: EPINEPHRINE
     Route: 065
  4. EPIPEN [Suspect]
     Active Substance: EPINEPHRINE
  5. MODERNA COVID-19 VACCINE [Suspect]
     Active Substance: ELASOMERAN
     Indication: COVID-19
     Route: 030
  6. MODERNA COVID-19 VACCINE [Suspect]
     Active Substance: ELASOMERAN
  7. MODERNA COVID-19 VACCINE [Suspect]
     Active Substance: ELASOMERAN
  8. MODERNA COVID-19 VACCINE [Suspect]
     Active Substance: ELASOMERAN
     Route: 030
  9. MODERNA COVID-19 VACCINE [Suspect]
     Active Substance: ELASOMERAN
     Route: 030
  10. MODERNA COVID-19 VACCINE [Suspect]
     Active Substance: ELASOMERAN
  11. MODERNA COVID-19 VACCINE [Suspect]
     Active Substance: ELASOMERAN
  12. MODERNA COVID-19 VACCINE [Suspect]
     Active Substance: ELASOMERAN
     Route: 030
  13. MODERNA COVID-19 VACCINE [Suspect]
     Active Substance: ELASOMERAN
     Indication: COVID-19
  14. MODERNA COVID-19 VACCINE [Suspect]
     Active Substance: ELASOMERAN
     Route: 065
  15. MODERNA COVID-19 VACCINE [Suspect]
     Active Substance: ELASOMERAN
     Route: 065
  16. MODERNA COVID-19 VACCINE [Suspect]
     Active Substance: ELASOMERAN
  17. LEVODOPA [Suspect]
     Active Substance: LEVODOPA
     Indication: Product used for unknown indication
  18. LEVODOPA [Suspect]
     Active Substance: LEVODOPA
     Route: 065
  19. LEVODOPA [Suspect]
     Active Substance: LEVODOPA
     Route: 065
  20. LEVODOPA [Suspect]
     Active Substance: LEVODOPA
  21. CARBIDOPA [Suspect]
     Active Substance: CARBIDOPA
     Indication: Product used for unknown indication
  22. CARBIDOPA [Suspect]
     Active Substance: CARBIDOPA
     Route: 065
  23. CARBIDOPA [Suspect]
     Active Substance: CARBIDOPA
     Route: 065
  24. CARBIDOPA [Suspect]
     Active Substance: CARBIDOPA
  25. MEASLES VIRUS VACCINE, LIVE [Suspect]
     Active Substance: MEASLES VIRUS STRAIN ENDERS^ ATTENUATED EDMONSTON LIVE ANTIGEN
     Indication: Product used for unknown indication
  26. MEASLES VIRUS VACCINE, LIVE [Suspect]
     Active Substance: MEASLES VIRUS STRAIN ENDERS^ ATTENUATED EDMONSTON LIVE ANTIGEN
     Route: 065
  27. MEASLES VIRUS VACCINE, LIVE [Suspect]
     Active Substance: MEASLES VIRUS STRAIN ENDERS^ ATTENUATED EDMONSTON LIVE ANTIGEN
     Route: 065
  28. MEASLES VIRUS VACCINE, LIVE [Suspect]
     Active Substance: MEASLES VIRUS STRAIN ENDERS^ ATTENUATED EDMONSTON LIVE ANTIGEN
  29. ALLEGRA [Concomitant]
     Active Substance: FEXOFENADINE HYDROCHLORIDE
  30. ALLEGRA [Concomitant]
     Active Substance: FEXOFENADINE HYDROCHLORIDE
     Route: 065
  31. ALLEGRA [Concomitant]
     Active Substance: FEXOFENADINE HYDROCHLORIDE
     Route: 065
  32. ALLEGRA [Concomitant]
     Active Substance: FEXOFENADINE HYDROCHLORIDE
  33. FLONASE [Concomitant]
     Active Substance: FLUTICASONE PROPIONATE
  34. FLONASE [Concomitant]
     Active Substance: FLUTICASONE PROPIONATE
     Route: 065
  35. FLONASE [Concomitant]
     Active Substance: FLUTICASONE PROPIONATE
     Route: 065
  36. FLONASE [Concomitant]
     Active Substance: FLUTICASONE PROPIONATE
  37. AMINO ACIDS, SOURCE UNSPECIFIED [Concomitant]
     Active Substance: AMINO ACIDS, SOURCE UNSPECIFIED
  38. AMINO ACIDS, SOURCE UNSPECIFIED [Concomitant]
     Active Substance: AMINO ACIDS, SOURCE UNSPECIFIED
     Route: 065
  39. AMINO ACIDS, SOURCE UNSPECIFIED [Concomitant]
     Active Substance: AMINO ACIDS, SOURCE UNSPECIFIED
     Route: 065
  40. AMINO ACIDS, SOURCE UNSPECIFIED [Concomitant]
     Active Substance: AMINO ACIDS, SOURCE UNSPECIFIED
  41. ACETAMINOPHEN [Concomitant]
     Active Substance: ACETAMINOPHEN
  42. ACETAMINOPHEN [Concomitant]
     Active Substance: ACETAMINOPHEN
     Route: 065
  43. ACETAMINOPHEN [Concomitant]
     Active Substance: ACETAMINOPHEN
     Route: 065
  44. ACETAMINOPHEN [Concomitant]
     Active Substance: ACETAMINOPHEN
  45. CALCIUM CARBONATE\VITAMIN D [Concomitant]
     Active Substance: CALCIUM CARBONATE\VITAMIN D
  46. CALCIUM CARBONATE\VITAMIN D [Concomitant]
     Active Substance: CALCIUM CARBONATE\VITAMIN D
     Route: 065
  47. CALCIUM CARBONATE\VITAMIN D [Concomitant]
     Active Substance: CALCIUM CARBONATE\VITAMIN D
     Route: 065
  48. CALCIUM CARBONATE\VITAMIN D [Concomitant]
     Active Substance: CALCIUM CARBONATE\VITAMIN D
  49. ASCORBIC ACID\ZINC [Concomitant]
     Active Substance: ASCORBIC ACID\ZINC
  50. ASCORBIC ACID\ZINC [Concomitant]
     Active Substance: ASCORBIC ACID\ZINC
     Route: 065
  51. ASCORBIC ACID\ZINC [Concomitant]
     Active Substance: ASCORBIC ACID\ZINC
     Route: 065
  52. ASCORBIC ACID\ZINC [Concomitant]
     Active Substance: ASCORBIC ACID\ZINC

REACTIONS (98)
  - Intracranial pressure increased [Not Recovered/Not Resolved]
  - Suicidal ideation [Not Recovered/Not Resolved]
  - Pulmonary arterial hypertension [Not Recovered/Not Resolved]
  - Major depression [Not Recovered/Not Resolved]
  - Seizure [Not Recovered/Not Resolved]
  - Brain oedema [Not Recovered/Not Resolved]
  - Systemic lupus erythematosus [Unknown]
  - Hallucination [Unknown]
  - Autism spectrum disorder [Unknown]
  - Deafness [Unknown]
  - Near death experience [Unknown]
  - Encephalopathy [Not Recovered/Not Resolved]
  - Brain injury [Unknown]
  - Paralysis [Not Recovered/Not Resolved]
  - Measles [Unknown]
  - Rheumatoid arthritis [Unknown]
  - Bipolar disorder [Unknown]
  - Spinal cord injury [Unknown]
  - Vagus nerve disorder [Unknown]
  - Autoimmune encephalopathy [Unknown]
  - Brain abscess [Not Recovered/Not Resolved]
  - Dementia [Unknown]
  - Anaphylactic shock [Not Recovered/Not Resolved]
  - Anaphylactic reaction [Unknown]
  - Psychotic disorder [Not Recovered/Not Resolved]
  - Tinnitus [Not Recovered/Not Resolved]
  - Vaccination site infection [Unknown]
  - Skin papilloma [Unknown]
  - Lumbar radiculopathy [Unknown]
  - Rotator cuff syndrome [Unknown]
  - Generalised anxiety disorder [Unknown]
  - Cognitive disorder [Unknown]
  - Emphysema [Unknown]
  - Spinal stenosis [Unknown]
  - Chest pain [Not Recovered/Not Resolved]
  - Chronic obstructive pulmonary disease [Unknown]
  - Bronchitis [Not Recovered/Not Resolved]
  - Cyst [Unknown]
  - Concussion [Unknown]
  - Immune system disorder [Unknown]
  - Visual impairment [Unknown]
  - Attention deficit hyperactivity disorder [Not Recovered/Not Resolved]
  - Nodule [Unknown]
  - Gait disturbance [Unknown]
  - Folliculitis [Unknown]
  - Muscle spasms [Unknown]
  - Ocular discomfort [Unknown]
  - Dyspnoea [Unknown]
  - Dysphagia [Unknown]
  - Balance disorder [Not Recovered/Not Resolved]
  - Vaccination site reaction [Unknown]
  - Chest discomfort [Not Recovered/Not Resolved]
  - Pustule [Unknown]
  - Formication [Not Recovered/Not Resolved]
  - Feeling abnormal [Not Recovered/Not Resolved]
  - Swelling [Unknown]
  - Localised infection [Unknown]
  - Irritability [Unknown]
  - Cardiac discomfort [Unknown]
  - Lung disorder [Unknown]
  - Bone disorder [Not Recovered/Not Resolved]
  - Hyperventilation [Not Recovered/Not Resolved]
  - Dehydration [Not Recovered/Not Resolved]
  - Urinary incontinence [Unknown]
  - Anal incontinence [Unknown]
  - Allergy to chemicals [Not Recovered/Not Resolved]
  - Hypokinesia [Unknown]
  - Illness [Unknown]
  - Insomnia [Unknown]
  - Cognitive disorder [Unknown]
  - Infected cyst [Unknown]
  - Asthma [Unknown]
  - Osteitis [Not Recovered/Not Resolved]
  - Therapeutic response unexpected [Unknown]
  - Oral discomfort [Not Recovered/Not Resolved]
  - Psychomotor hyperactivity [Not Recovered/Not Resolved]
  - Gastric infection [Unknown]
  - Vasodilatation [Unknown]
  - Dyskinesia [Unknown]
  - Psychotic disorder [Unknown]
  - COVID-19 [Not Recovered/Not Resolved]
  - Multiple allergies [Not Recovered/Not Resolved]
  - Pain in extremity [Not Recovered/Not Resolved]
  - Primary stabbing headache [Not Recovered/Not Resolved]
  - Drug hypersensitivity [Unknown]
  - Arthralgia [Unknown]
  - Gastrointestinal disorder [Unknown]
  - Carpal tunnel syndrome [Unknown]
  - Purulent discharge [Not Recovered/Not Resolved]
  - Skin papilloma [Unknown]
  - Vaccination site abscess [Recovered/Resolved]
  - Vaccination site pruritus [Not Recovered/Not Resolved]
  - Staphylococcal infection [Not Recovered/Not Resolved]
  - Fatigue [Unknown]
  - Erythema [Unknown]
  - Parkinson^s disease [Not Recovered/Not Resolved]
  - Palpitations [Not Recovered/Not Resolved]
  - Tremor [Unknown]

NARRATIVE: CASE EVENT DATE: 20210906
